FAERS Safety Report 23534059 (Version 1)
Quarter: 2024Q1

REPORT INFORMATION
  Report Type: Spontaneous
  Country: PL (occurrence: PL)
  Receive Date: 20240216
  Receipt Date: 20240216
  Transmission Date: 20240409
  Serious: Yes (Other)
  Sender: FDA-Public Use
  Company Number: PL-ADMA BIOLOGICS INC.-PL-2024ADM000034

PATIENT
  Age: 62 Year
  Sex: Male

DRUGS (2)
  1. HUMAN IMMUNOGLOBULIN G [Suspect]
     Active Substance: HUMAN IMMUNOGLOBULIN G
     Indication: Cerebral amyloid angiopathy
     Dosage: 0.4?MG/KG BODY WEIGHT FOR 5 DAYS
     Route: 042
  2. METHYLPREDNISOLONE [Suspect]
     Active Substance: METHYLPREDNISOLONE
     Indication: Cerebral amyloid angiopathy
     Dosage: 1,000?MG FOR 5 DAYS
     Route: 042

REACTIONS (2)
  - Renal failure [Unknown]
  - Off label use [Unknown]
